FAERS Safety Report 5308658-X (Version None)
Quarter: 2007Q2

REPORT INFORMATION
  Report Type: 
  Country: None (occurrence: None)
  Receive Date: 20070426
  Receipt Date: 20070420
  Transmission Date: 20071010
  Serious: Yes (Hospitalization)
  Sender: FDA-Public Use
  Company Number: 200511035GDDC

PATIENT
  Age: 9 Year
  Sex: Female
  Weight: 30 kg

DRUGS (7)
  1. MINIRIN [Suspect]
     Indication: DIABETES INSIPIDUS
     Route: 042
     Dates: start: 20050103, end: 20050103
  2. MINIRIN [Suspect]
     Route: 042
     Dates: start: 20050104, end: 20050104
  3. MINIRIN [Suspect]
     Route: 042
     Dates: start: 20050105, end: 20050105
  4. MINIRIN [Suspect]
     Route: 045
     Dates: start: 20050106, end: 20050107
  5. MINIRIN [Suspect]
     Route: 045
     Dates: start: 20050108, end: 20050108
  6. HYDROCORTISONE [Concomitant]
     Indication: HYPOPITUITARISM
     Dates: start: 20050101
  7. LEVOTHYROXINE SODIUM [Concomitant]
     Indication: HYPOPITUITARISM
     Dates: start: 20050101

REACTIONS (3)
  - CONFUSIONAL STATE [None]
  - HYPONATRAEMIA [None]
  - WATER INTOXICATION [None]
